FAERS Safety Report 17412635 (Version 1)
Quarter: 2020Q1

REPORT INFORMATION
  Report Type: Report from Study
  Country: None (occurrence: US)
  Receive Date: 20200213
  Receipt Date: 20200213
  Transmission Date: 20200409
  Serious: Yes (Hospitalization)
  Sender: FDA-Public Use
  Company Number: US-ABBVIE-20K-163-3271660-00

PATIENT
  Age: 58 Year
  Sex: Female

DRUGS (1)
  1. MAVYRET [Suspect]
     Active Substance: GLECAPREVIR\PIBRENTASVIR
     Indication: HEPATITIS C
     Dosage: 3 TABLETS
     Route: 048
     Dates: start: 20200114, end: 20200126

REACTIONS (4)
  - Alcohol withdrawal syndrome [Unknown]
  - Blood pressure increased [Recovered/Resolved]
  - Fall [Recovered/Resolved]
  - Back pain [Recovering/Resolving]

NARRATIVE: CASE EVENT DATE: 202001
